FAERS Safety Report 17563456 (Version 1)
Quarter: 2020Q1

REPORT INFORMATION
  Report Type: Report from Study
  Country: None (occurrence: LB)
  Receive Date: 20200320
  Receipt Date: 20200320
  Transmission Date: 20200409
  Serious: Yes (Death, Hospitalization, Disabling)
  Sender: FDA-Public Use
  Company Number: LB-ABBVIE-20K-093-3328192-00

PATIENT
  Age: 64 Year
  Sex: Female
  Weight: 89 kg

DRUGS (3)
  1. HUMIRA [Suspect]
     Active Substance: ADALIMUMAB
     Indication: RHEUMATOID ARTHRITIS
     Route: 058
     Dates: start: 201604, end: 201712
  2. ARAVA [Concomitant]
     Active Substance: LEFLUNOMIDE
     Indication: PRODUCT USED FOR UNKNOWN INDICATION
  3. HUMIRA [Suspect]
     Active Substance: ADALIMUMAB
     Route: 058
     Dates: start: 20180117, end: 2019

REACTIONS (8)
  - General physical health deterioration [Fatal]
  - Pulmonary oedema [Fatal]
  - Renal failure [Fatal]
  - Myocardial infarction [Fatal]
  - Bedridden [Fatal]
  - Cardiac disorder [Fatal]
  - Oedema peripheral [Fatal]
  - Pain in extremity [Fatal]

NARRATIVE: CASE EVENT DATE: 2019
